FAERS Safety Report 21870236 (Version 2)
Quarter: 2023Q1

REPORT INFORMATION
  Report Type: Other
  Country: US (occurrence: US)
  Receive Date: 20230117
  Receipt Date: 20230322
  Transmission Date: 20230417
  Serious: Yes (Other)
  Sender: FDA-Public Use
  Company Number: US-002147023-NVSC2022US303175

PATIENT
  Age: 21 Year
  Sex: Female

DRUGS (1)
  1. OMALIZUMAB [Suspect]
     Active Substance: OMALIZUMAB
     Indication: Product used for unknown indication
     Dosage: UNK, 2 EXPOSURES
     Route: 065

REACTIONS (4)
  - Throat tightness [Unknown]
  - Dyspnoea [Unknown]
  - Urticaria [Unknown]
  - Dizziness [Unknown]
